FAERS Safety Report 5730357-0 (Version None)
Quarter: 2008Q2

REPORT INFORMATION
  Report Type: 
  Country: None (occurrence: None)
  Receive Date: 20080430
  Receipt Date: 20080211
  Transmission Date: 20081010
  Serious: No
  Sender: FDA-Public Use
  Company Number: 2008-US-000288

PATIENT
  Age: 12 Year
  Sex: Female
  Weight: 34 kg

DRUGS (7)
  1. INCRELEX [Suspect]
     Indication: INSULIN-LIKE GROWTH FACTOR DECREASED
     Dosage: 27 UT, BID, SUBCUTANEOUS ; 37 UT, BID ; 27 UNITS, BID
     Route: 058
     Dates: start: 20080109, end: 20080116
  2. INCRELEX [Suspect]
     Indication: INSULIN-LIKE GROWTH FACTOR DECREASED
     Dosage: 27 UT, BID, SUBCUTANEOUS ; 37 UT, BID ; 27 UNITS, BID
     Route: 058
     Dates: start: 20080117, end: 20080202
  3. INCRELEX [Suspect]
     Indication: INSULIN-LIKE GROWTH FACTOR DECREASED
     Dosage: 27 UT, BID, SUBCUTANEOUS ; 37 UT, BID ; 27 UNITS, BID
     Route: 058
     Dates: start: 20080210
  4. TRAZODONE HCL [Concomitant]
  5. CITALOPRAM /00582602/ (CITALOPRAM HYDROBROMIDE) [Concomitant]
  6. AMANTADINE /00055902/ (AMANTADINE HYDROCHLORIDE) [Concomitant]
  7. NAZONEZ (MOMETASONE FUROATE) [Concomitant]

REACTIONS (4)
  - INJECTION SITE ERYTHEMA [None]
  - INJECTION SITE NODULE [None]
  - INJECTION SITE PAIN [None]
  - INJECTION SITE PRURITUS [None]
